FAERS Safety Report 5856317-7 (Version None)
Quarter: 2008Q3

REPORT INFORMATION
  Report Type: 
  Country: None (occurrence: None)
  Receive Date: 20080825
  Receipt Date: 20080817
  Transmission Date: 20090109
  Serious: Yes (Other)
  Sender: FDA-Public Use
  Company Number: US-AMGEN-QUU302045

PATIENT
  Sex: Female

DRUGS (2)
  1. ENBREL [Suspect]
     Indication: PSORIATIC ARTHROPATHY
     Route: 058
     Dates: start: 20051101
  2. ANTIHYPERTENSIVE MEDICATION NOS [Concomitant]
     Dates: start: 20080101

REACTIONS (3)
  - HEADACHE [None]
  - LABILE BLOOD PRESSURE [None]
  - NUCLEAR MAGNETIC RESONANCE IMAGING BRAIN ABNORMAL [None]
